FAERS Safety Report 7080119-X (Version None)
Quarter: 2010Q4

REPORT INFORMATION
  Report Type: 
  Country: None (occurrence: None)
  Receive Date: 20101102
  Receipt Date: 20101026
  Transmission Date: 20110411
  Serious: Yes (Other)
  Sender: FDA-Public Use
  Company Number: US-GILEAD-2010-0032962

PATIENT
  Age: 64 Year
  Sex: Female

DRUGS (18)
  1. RANEXA [Suspect]
     Indication: ANGINA PECTORIS
  2. TACROLIMUS [Concomitant]
     Indication: RENAL TRANSPLANT
  3. MYCOPHENOLATE MOFETIL [Concomitant]
  4. PREDNISONE [Concomitant]
  5. TRIMETHOPRIM + SULFAMETHOXAZOLE [Concomitant]
  6. ASPIRIN [Concomitant]
  7. LOSARTAN [Concomitant]
  8. NITROGLYCERIN [Concomitant]
  9. AMLODIPINE [Concomitant]
  10. METOPROLOL SUCCINATE [Concomitant]
  11. HYDRALAZINE [Concomitant]
  12. IRON POLYSACCHARIDE [Concomitant]
  13. OMEPRAZOLE [Concomitant]
  14. SIMVASTATIN [Concomitant]
  15. GLIPIZIDE [Concomitant]
  16. MAGNESIUM OXIDE [Concomitant]
  17. SODIUM BICARBONATE [Concomitant]
  18. ISOSORBIDE MONONITRATE [Concomitant]

REACTIONS (1)
  - DRUG INTERACTION [None]
